FAERS Safety Report 17944877 (Version 5)
Quarter: 2020Q4

REPORT INFORMATION
  Report Type: Report from Study
  Country: None (occurrence: US)
  Receive Date: 20200626
  Receipt Date: 20201221
  Transmission Date: 20210113
  Serious: Yes (Hospitalization, Other)
  Sender: FDA-Public Use
  Company Number: US-ABBVIE-20K-163-3459533-00

PATIENT
  Sex: Female

DRUGS (6)
  1. HUMIRA [Suspect]
     Active Substance: ADALIMUMAB
     Route: 058
  2. HUMIRA [Suspect]
     Active Substance: ADALIMUMAB
     Indication: RHEUMATOID ARTHRITIS
     Route: 058
     Dates: end: 20200508
  3. VALIUM [Suspect]
     Active Substance: DIAZEPAM
     Indication: PRODUCT USED FOR UNKNOWN INDICATION
     Route: 065
  4. GABAPENTINE [Concomitant]
     Active Substance: GABAPENTIN
     Indication: PRODUCT USED FOR UNKNOWN INDICATION
  5. PREDNISONE. [Concomitant]
     Active Substance: PREDNISONE
     Indication: PRODUCT USED FOR UNKNOWN INDICATION
  6. HUMIRA [Suspect]
     Active Substance: ADALIMUMAB
     Route: 058

REACTIONS (15)
  - Balance disorder [Recovering/Resolving]
  - Neuralgia [Unknown]
  - Hypertrichosis [Unknown]
  - Nervousness [Unknown]
  - Muscle disorder [Unknown]
  - Pain in extremity [Recovering/Resolving]
  - Procedural pain [Unknown]
  - Pain in extremity [Not Recovered/Not Resolved]
  - Scoliosis [Recovering/Resolving]
  - Joint range of motion decreased [Recovering/Resolving]
  - Eating disorder [Unknown]
  - Restlessness [Unknown]
  - Asthenia [Unknown]
  - Mobility decreased [Unknown]
  - Fear of disease [Unknown]

NARRATIVE: CASE EVENT DATE: 2020
